FAERS Safety Report 8028708-X (Version None)
Quarter: 2012Q1

REPORT INFORMATION
  Report Type: 
  Country: None (occurrence: None)
  Receive Date: 20120106
  Receipt Date: 20120105
  Transmission Date: 20120608
  Serious: No
  Sender: FDA-Public Use
  Company Number: US-TEVA-315843USA

PATIENT
  Sex: Female
  Weight: 93.07 kg

DRUGS (1)
  1. PLAN B ONE-STEP [Suspect]
     Indication: POST COITAL CONTRACEPTION
     Dosage: 1.5 MILLIGRAM;
     Route: 048
     Dates: start: 20111221, end: 20111221

REACTIONS (5)
  - MENSTRUATION IRREGULAR [None]
  - DYSMENORRHOEA [None]
  - DIZZINESS [None]
  - HEADACHE [None]
  - VOMITING [None]
